FAERS Safety Report 24272251 (Version 1)
Quarter: 2024Q3

REPORT INFORMATION
  Report Type: Spontaneous
  Country: JP (occurrence: JP)
  Receive Date: 20240902
  Receipt Date: 20240902
  Transmission Date: 20241017
  Serious: Yes (Other)
  Sender: CHEPLAPHARM
  Company Number: None

PATIENT
  Age: 3 Decade
  Sex: Female

DRUGS (7)
  1. CAPECITABINE [Suspect]
     Active Substance: CAPECITABINE
     Indication: Breast cancer stage IV
     Dosage: ADMINISTERED TWICE DAILY FOR THREE CONSECUTIVE WEEKS WITH 1 WEEK OFF, WAS INTRODUCED CYCLICALLY A...
  2. PACLITAXEL [Suspect]
     Active Substance: PACLITAXEL
     Indication: Breast cancer stage IV
     Dosage: SECOND-LINE THERAPY/14TH COURSE DUE -WAS ADMINISTERED CYCLICALLY ON A?WEEKLY BASIS FOR THREE CON...
  3. ABEMACICLIB [Concomitant]
     Active Substance: ABEMACICLIB
     Indication: Breast cancer stage IV
     Dosage: 150 MG TWICE A DAY/SECOND-LINE THERAPY?DAILY DOSE: 300 MILLIGRAM
  4. FULVESTRANT [Concomitant]
     Active Substance: FULVESTRANT
     Indication: Breast cancer stage IV
     Dosage: 500 MG EVERY 4 WEEKS
  5. TAMOXIFEN [Concomitant]
     Active Substance: TAMOXIFEN
     Indication: Cancer hormonal therapy
     Dosage: (20 MG) EVERY MORNING ?DAILY DOSE: 20 MILLIGRAM
  6. LEUPROLIDE ACETATE [Concomitant]
     Active Substance: ISOPROPYL ALCOHOL\LEUPROLIDE ACETATE
     Indication: Cancer hormonal therapy
     Dosage: (11.25 MG) EVERY 12 WEEKS
  7. LEUPROLIDE ACETATE [Concomitant]
     Active Substance: ISOPROPYL ALCOHOL\LEUPROLIDE ACETATE
     Indication: Cancer hormonal therapy
     Dosage: (11.25 MG) EVERY 12 WEEKS AS THE SECOND-LINE THERAPY

REACTIONS (4)
  - Neuropathy peripheral [Unknown]
  - Herpes zoster disseminated [Unknown]
  - Petit mal epilepsy [Unknown]
  - Altered state of consciousness [Unknown]

NARRATIVE: CASE EVENT DATE: 20221201
